FAERS Safety Report 8816032 (Version 2)
Quarter: 2013Q1

REPORT INFORMATION
  Report Type: Spontaneous
  Country: CN (occurrence: CN)
  Receive Date: 20120928
  Receipt Date: 20130320
  Transmission Date: 20140127
  Serious: Yes (Death, Hospitalization)
  Sender: FDA-Public Use
  Company Number: CN-PFIZER INC-2012235705

PATIENT
  Age: 80 Year
  Sex: Female

DRUGS (6)
  1. CELEBREX [Suspect]
     Indication: OSTEOARTHRITIS
     Dosage: 200 MG, 2X/DAY
     Route: 048
     Dates: start: 20120626
  2. LIDOCAINE [Concomitant]
     Indication: OSTEOARTHRITIS
     Dosage: 0.1 G, WEEKLY
     Route: 052
     Dates: start: 20120626
  3. PREDNISOLONE [Concomitant]
     Indication: OSTEOARTHRITIS
     Dosage: 0.025 G, SINGLE
     Route: 014
  4. GLUCOSAMINE SULFATE [Concomitant]
     Indication: OSTEOARTHRITIS
     Dosage: 0.628 G, 3X/DAY
     Route: 048
     Dates: start: 20120626
  5. DIACEREIN [Concomitant]
     Dosage: 50 MG, 2X/DAY
     Route: 048
     Dates: start: 20120626
  6. HYALURONATE SODIUM [Concomitant]
     Indication: OSTEOARTHRITIS
     Dosage: 25 MG, WEEKLY
     Route: 014

REACTIONS (6)
  - Cerebral infarction [Fatal]
  - Blood pressure increased [Unknown]
  - General physical health deterioration [Not Recovered/Not Resolved]
  - Headache [Not Recovered/Not Resolved]
  - Chest discomfort [Not Recovered/Not Resolved]
  - Dizziness [Unknown]
